FAERS Safety Report 24966088 (Version 1)
Quarter: 2025Q1

REPORT INFORMATION
  Report Type: Spontaneous
  Country: US (occurrence: None)
  Receive Date: 20250213
  Receipt Date: 20250213
  Transmission Date: 20250408
  Serious: Yes (Hospitalization)
  Sender: FDA-CTU
  Company Number: None

PATIENT
  Age: 14 Year
  Sex: Female
  Weight: 85.5 kg

DRUGS (1)
  1. TOPIRAMATE [Suspect]
     Active Substance: TOPIRAMATE
     Indication: Migraine
     Dates: start: 20240321, end: 20240417

REACTIONS (2)
  - Constipation [None]
  - Abdominal pain [None]

NARRATIVE: CASE EVENT DATE: 20240416
